FAERS Safety Report 8465231-2 (Version None)
Quarter: 2012Q2

REPORT INFORMATION
  Report Type: 
  Country: None (occurrence: None)
  Receive Date: 20120626
  Receipt Date: 20120614
  Transmission Date: 20120825
  Serious: Yes (Other)
  Sender: FDA-Public Use
  Company Number: FR-BRISTOL-MYERS SQUIBB COMPANY-16691255

PATIENT
  Age: 39 Year
  Sex: Male

DRUGS (2)
  1. NOZINAN [Suspect]
     Route: 048
     Dates: start: 20120514, end: 20120518
  2. ABILIFY [Suspect]
     Dosage: ALSO 30MG
     Route: 048
     Dates: start: 20120401, end: 20120518

REACTIONS (2)
  - LYMPHOCYTOSIS [None]
  - NEUTROPENIA [None]
